FAERS Safety Report 11748341 (Version 9)
Quarter: 2018Q3

REPORT INFORMATION
  Report Type: Spontaneous
  Country: US (occurrence: US)
  Receive Date: 20151117
  Receipt Date: 20180925
  Transmission Date: 20181010
  Serious: Yes (Hospitalization)
  Sender: FDA-Public Use
  Company Number: US-DSJP-DSU-2015-118059

PATIENT

DRUGS (7)
  1. BENICAR [Suspect]
     Active Substance: OLMESARTAN MEDOXOMIL
     Dosage: UNK
  2. BENICAR [Suspect]
     Active Substance: OLMESARTAN MEDOXOMIL
     Indication: HYPERTENSION
     Dosage: 20 MG, QD
     Route: 048
     Dates: start: 20081013, end: 201404
  3. BENICAR [Suspect]
     Active Substance: OLMESARTAN MEDOXOMIL
     Dosage: 10 MG, QD
     Dates: start: 2013
  4. BENICAR [Suspect]
     Active Substance: OLMESARTAN MEDOXOMIL
     Dosage: 20 MG, HALF TABLET
  5. BENICAR HCT [Suspect]
     Active Substance: HYDROCHLOROTHIAZIDE\OLMESARTAN MEDOXOMIL
     Indication: PRODUCT USED FOR UNKNOWN INDICATION
     Dosage: UNK
     Dates: start: 20060101
  6. BENICAR [Suspect]
     Active Substance: OLMESARTAN MEDOXOMIL
     Dosage: 5 MG, UNK
  7. HYDROCODONE BITARTRATE AND ACETAMINOPHEN [Concomitant]
     Active Substance: ACETAMINOPHEN\HYDROCODONE BITARTRATE
     Indication: PRODUCT USED FOR UNKNOWN INDICATION
     Dosage: 5?500 TABLET, UNK

REACTIONS (9)
  - Gastrooesophageal reflux disease [Unknown]
  - Hepatic function abnormal [Unknown]
  - Coeliac disease [Unknown]
  - Acute kidney injury [Recovered/Resolved]
  - Sprue-like enteropathy [Not Recovered/Not Resolved]
  - Rectal haemorrhage [Unknown]
  - Constipation [Recovered/Resolved]
  - Drug administration error [Unknown]
  - Cholelithiasis [Recovered/Resolved]

NARRATIVE: CASE EVENT DATE: 2010
